FAERS Safety Report 8558165-6 (Version None)
Quarter: 2012Q3

REPORT INFORMATION
  Report Type: 
  Country: None (occurrence: None)
  Receive Date: 20120801
  Receipt Date: 20120725
  Transmission Date: 20120928
  Serious: Yes (Hospitalization)
  Sender: FDA-Public Use
  Company Number: DE-ABBOTT-12P-062-0960769-00

PATIENT
  Sex: Male

DRUGS (2)
  1. HUMIRA [Suspect]
     Indication: PSORIASIS
     Route: 058
     Dates: start: 20120417, end: 20120615
  2. AMLODIPINE [Concomitant]
     Indication: HYPERTENSION

REACTIONS (2)
  - INTERVERTEBRAL DISC OPERATION [None]
  - IMPAIRED HEALING [None]
